FAERS Safety Report 8494379-1 (Version None)
Quarter: 2012Q2

REPORT INFORMATION
  Report Type: 
  Country: None (occurrence: None)
  Receive Date: 20120628
  Receipt Date: 20120615
  Transmission Date: 20120825
  Serious: Yes (Hospitalization)
  Sender: FDA-Public Use
  Company Number: 2012SP032460

PATIENT
  Age: 64 Year
  Sex: Female
  Weight: 52 kg

DRUGS (13)
  1. FERROUS SULFATE TAB [Concomitant]
  2. PEG-INTRON [Suspect]
     Indication: HEPATITIS C
     Dosage: 1.5 MCG/KG;QW;PARN
     Dates: start: 20120329, end: 20120529
  3. REBETOL [Suspect]
     Indication: HEPATITIS C
     Dosage: 600 MG;QD;PO 400 MG;QD;PO 200 MG;QD;PO
     Route: 048
     Dates: start: 20120419, end: 20120501
  4. REBETOL [Suspect]
     Indication: HEPATITIS C
     Dosage: 600 MG;QD;PO 400 MG;QD;PO 200 MG;QD;PO
     Route: 048
     Dates: start: 20120329, end: 20120418
  5. REBETOL [Suspect]
     Indication: HEPATITIS C
     Dosage: 600 MG;QD;PO 400 MG;QD;PO 200 MG;QD;PO
     Route: 048
     Dates: start: 20120502, end: 20120516
  6. TELAVIC (ANTIVIRALS NOS) [Suspect]
     Indication: HEPATITIS C
     Dosage: 2250 MG;QD;PO 1500 MG;QD;PO
     Route: 048
     Dates: start: 20120329, end: 20120509
  7. TELAVIC (ANTIVIRALS NOS) [Suspect]
     Indication: HEPATITIS C
     Dosage: 2250 MG;QD;PO 1500 MG;QD;PO
     Route: 048
     Dates: start: 20120510, end: 20120529
  8. ALLEGRA [Concomitant]
  9. MYSER /00115501/ [Concomitant]
  10. L CARTIN [Concomitant]
  11. TALION [Concomitant]
  12. ALLOPURINOL [Concomitant]
  13. LOCOID [Concomitant]

REACTIONS (4)
  - ENANTHEMA [None]
  - DRUG ERUPTION [None]
  - PYREXIA [None]
  - HYPERURICAEMIA [None]
